FAERS Safety Report 9022064 (Version 1)
Quarter: 2013Q1

REPORT INFORMATION
  Report Type: Spontaneous
  Country: US (occurrence: US)
  Receive Date: 20130118
  Receipt Date: 20130118
  Transmission Date: 20140127
  Serious: Yes (Hospitalization)
  Sender: FDA-Public Use
  Company Number: US-GLAXOSMITHKLINE-A0889303A

PATIENT
  Age: 36 Year
  Sex: Male
  Weight: 88.9 kg

DRUGS (6)
  1. AVANDIA [Suspect]
     Indication: DIABETES MELLITUS
     Dosage: 4MG PER DAY
     Route: 048
     Dates: start: 2006, end: 2008
  2. CRESTOR [Concomitant]
  3. METFORMIN [Concomitant]
  4. THALITONE [Concomitant]
  5. ASPIRIN [Concomitant]
  6. LANTUS [Concomitant]

REACTIONS (3)
  - Cardiac arrest [Not Recovered/Not Resolved]
  - Myocardial infarction [Unknown]
  - Resuscitation [Unknown]
